FAERS Safety Report 25355056 (Version 2)
Quarter: 2025Q2

REPORT INFORMATION
  Report Type: Spontaneous
  Country: ES (occurrence: ES)
  Receive Date: 20250524
  Receipt Date: 20250605
  Transmission Date: 20250716
  Serious: Yes (Life-Threatening, Hospitalization, Other)
  Sender: AUROBINDO
  Company Number: ES-Eisai-EC-2025-188770

PATIENT
  Age: 24 Year
  Sex: Female

DRUGS (6)
  1. LACOSAMIDE [Suspect]
     Active Substance: LACOSAMIDE
     Indication: Epilepsy
     Dosage: 300 MILLIGRAM, ONCE A DAY
     Route: 065
  2. LACOSAMIDE [Suspect]
     Active Substance: LACOSAMIDE
     Dosage: 100 MILLIGRAM, TWO TIMES A DAY
     Route: 065
  3. LACOSAMIDE [Suspect]
     Active Substance: LACOSAMIDE
     Dosage: 100 MILLIGRAM, 3 TIMES A DAY
     Route: 065
  4. FYCOMPA [Suspect]
     Active Substance: PERAMPANEL
     Indication: Epilepsy
     Dosage: 4 MILLIGRAM, ONCE A DAY
     Route: 048
  5. FYCOMPA [Suspect]
     Active Substance: PERAMPANEL
     Dosage: 6 MILLIGRAM, ONCE A DAY
     Route: 048
  6. CENOBAMATE [Concomitant]
     Active Substance: CENOBAMATE
     Indication: Product used for unknown indication
     Dosage: 50 MILLIGRAM, ONCE A DAY
     Route: 065

REACTIONS (3)
  - Neurogenic pulmonary oedema [Recovered/Resolved]
  - Acute respiratory failure [Unknown]
  - Altered state of consciousness [Unknown]
